FAERS Safety Report 4266772-4 (Version None)
Quarter: 2004Q1

REPORT INFORMATION
  Report Type: 
  Country: None (occurrence: None)
  Receive Date: 20040108
  Receipt Date: 20021030
  Transmission Date: 20041129
  Serious: No
  Sender: FDA-Public Use
  Company Number: US-BRISTOL-MYERS SQUIBB COMPANY-12096681

PATIENT
  Age: 80 Year
  Sex: Female

DRUGS (9)
  1. CARDIOLITE [Suspect]
     Indication: CARDIAC IMAGING PROCEDURE
     Dosage: ROUTE OF ADMINISTRATION: INJECTION
     Route: 042
     Dates: start: 20021025, end: 20021025
  2. ADENOSINE [Concomitant]
  3. MULTI-VITAMINS [Concomitant]
  4. CALCIUM [Concomitant]
  5. ASPIRIN [Concomitant]
  6. ZESTRIL [Concomitant]
  7. METOPROLOL [Concomitant]
  8. TAMOXIFEN CITRATE [Concomitant]
  9. SUBLINGUAL NITROGLYCERIN [Concomitant]

REACTIONS (6)
  - ASTHENIA [None]
  - CHILLS [None]
  - DIZZINESS [None]
  - NAUSEA [None]
  - PYREXIA [None]
  - TREMOR [None]
